FAERS Safety Report 10163246 (Version 2)
Quarter: 2014Q2

REPORT INFORMATION
  Report Type: Spontaneous
  Country: US (occurrence: US)
  Receive Date: 20140509
  Receipt Date: 20140512
  Transmission Date: 20141212
  Serious: Yes (Hospitalization)
  Sender: FDA-Public Use
  Company Number: US-B.I. PHARMACEUTICALS,INC./RIDGEFIELD-2014-BI-20403BP

PATIENT
  Age: 63 Year
  Sex: Female

DRUGS (8)
  1. COMBIVENT [Suspect]
     Indication: CHRONIC OBSTRUCTIVE PULMONARY DISEASE
     Dosage: STRENGTH: 20 MCG / 100 MCG; DAILY DOSE: 80 MCG/400MCG
     Route: 055
  2. XANAX [Concomitant]
     Indication: ANXIETY
     Dosage: 1 MG
     Route: 048
  3. PRAVASTATIN [Concomitant]
     Dosage: 20 MG
     Route: 048
  4. ADVAIR [Concomitant]
     Indication: CHRONIC OBSTRUCTIVE PULMONARY DISEASE
     Dosage: STRENGTH: 500/50 MG, DAILY DOSE: 1000/100 MG
     Route: 055
  5. CARDIZEM [Concomitant]
     Dosage: 180 MG
     Route: 048
  6. LISINOPRIL [Concomitant]
     Indication: HYPERTENSION
     Dosage: 10 MG
     Route: 048
  7. NEXIUM [Concomitant]
     Indication: GASTROOESOPHAGEAL REFLUX DISEASE
     Dosage: 40 MG
     Route: 048
  8. CLOPIDOGREL [Concomitant]
     Dosage: 35 MG
     Route: 048

REACTIONS (3)
  - Cerebrovascular accident [Recovered/Resolved]
  - Memory impairment [Not Recovered/Not Resolved]
  - Arthritis [Unknown]
